FAERS Safety Report 5825149-8 (Version None)
Quarter: 2008Q3

REPORT INFORMATION
  Report Type: 
  Country: None (occurrence: None)
  Receive Date: 20080729
  Receipt Date: 20080723
  Transmission Date: 20090109
  Serious: Yes (Other)
  Sender: FDA-Public Use
  Company Number: BR-BAYER-200816276LA

PATIENT
  Age: 30 Year
  Sex: Female

DRUGS (1)
  1. YAZ [Suspect]
     Indication: ORAL CONTRACEPTION
     Route: 048
     Dates: start: 20070901, end: 20080201

REACTIONS (2)
  - ANTEPARTUM HAEMORRHAGE [None]
  - PREGNANCY ON ORAL CONTRACEPTIVE [None]
